FAERS Safety Report 5153352-1 (Version None)
Quarter: 2006Q4

REPORT INFORMATION
  Report Type: 
  Country: None (occurrence: None)
  Receive Date: 20061117
  Receipt Date: 20061108
  Transmission Date: 20070319
  Serious: Yes (Other)
  Sender: FDA-Public Use
  Company Number: US-JNJFOC-20061103814

PATIENT
  Sex: Female

DRUGS (4)
  1. TYLENOL [Suspect]
     Indication: THROAT IRRITATION
  2. TYLENOL [Suspect]
     Indication: NASOPHARYNGITIS
  3. BENYLIN [Suspect]
     Indication: THROAT IRRITATION
  4. BENYLIN [Suspect]
     Indication: NASOPHARYNGITIS

REACTIONS (1)
  - HYPERSOMNIA [None]
